FAERS Safety Report 9199755 (Version 1)
Quarter: 2013Q1

REPORT INFORMATION
  Report Type: Spontaneous
  Country: NO (occurrence: NO)
  Receive Date: 20130327
  Receipt Date: 20130327
  Transmission Date: 20140127
  Serious: Yes (Other)
  Sender: FDA-Public Use
  Company Number: NO-RB-051540-13

PATIENT
  Sex: Male

DRUGS (1)
  1. SUBUTEX [Suspect]
     Indication: DRUG ABUSE
     Route: 042
     Dates: start: 2008, end: 2012

REACTIONS (3)
  - Intentional drug misuse [Recovered/Resolved]
  - Drug abuse [Recovered/Resolved]
  - Cerebral infarction [Recovered/Resolved with Sequelae]
